FAERS Safety Report 9833032 (Version 2)
Quarter: 2014Q2

REPORT INFORMATION
  Report Type: Spontaneous
  Country: US (occurrence: US)
  Receive Date: 20140121
  Receipt Date: 20140415
  Transmission Date: 20141212
  Serious: Yes (Congenital Anomaly, Other)
  Sender: FDA-Public Use
  Company Number: US-PFIZER INC-2014014196

PATIENT
  Sex: Male

DRUGS (8)
  1. ZOLOFT [Suspect]
     Indication: ANXIETY
     Dosage: UNK
     Route: 064
     Dates: start: 200306
  2. ZOLOFT [Suspect]
     Indication: DEPRESSION
  3. ZOLOFT [Suspect]
     Indication: AFFECTIVE DISORDER
  4. SERTRALINE HCL [Suspect]
     Indication: ANXIETY
     Dosage: UNK
     Route: 064
     Dates: start: 200306
  5. SERTRALINE HCL [Suspect]
     Indication: DEPRESSION
  6. SERTRALINE HCL [Suspect]
     Indication: AFFECTIVE DISORDER
  7. TYLENOL [Concomitant]
     Dosage: UNK
     Route: 064
  8. ZANTAC [Concomitant]
     Dosage: UNK
     Route: 064

REACTIONS (7)
  - Maternal exposure during pregnancy [Unknown]
  - Arnold-Chiari malformation [Unknown]
  - Congenital hydrocephalus [Unknown]
  - Tethered cord syndrome [Unknown]
  - Congenital anomaly [Unknown]
  - Developmental delay [Unknown]
  - Premature baby [Unknown]
